FAERS Safety Report 25706259 (Version 2)
Quarter: 2025Q3

REPORT INFORMATION
  Report Type: Report from Study
  Country: JP (occurrence: JP)
  Receive Date: 20250820
  Receipt Date: 20250908
  Transmission Date: 20251020
  Serious: Yes (Hospitalization, Other)
  Sender: PFIZER
  Company Number: JP-PFIZER INC-PV202500099464

PATIENT
  Age: 65 Year
  Sex: Male
  Weight: 57.8 kg

DRUGS (29)
  1. MEROPENEM [Suspect]
     Active Substance: MEROPENEM
     Indication: Febrile neutropenia
     Route: 041
     Dates: start: 20220506, end: 20220510
  2. MEROPENEM [Suspect]
     Active Substance: MEROPENEM
     Route: 041
     Dates: start: 20220616, end: 20220618
  3. RITUXIMAB [Suspect]
     Active Substance: RITUXIMAB
     Indication: Central nervous system lymphoma
     Dosage: 580 MG, 1X/DAY
     Route: 041
     Dates: start: 20220424, end: 20220424
  4. RITUXIMAB [Suspect]
     Active Substance: RITUXIMAB
     Dosage: 580 MG, 1X/DAY
     Route: 041
     Dates: start: 20220529, end: 20220529
  5. METHOTREXATE SODIUM [Suspect]
     Active Substance: METHOTREXATE SODIUM
     Indication: Central nervous system lymphoma
     Dosage: 5440 MG, 1X/DAY
     Route: 041
     Dates: start: 20220425, end: 20220425
  6. METHOTREXATE SODIUM [Suspect]
     Active Substance: METHOTREXATE SODIUM
     Dosage: 5440 MG, 1X/DAY
     Route: 041
     Dates: start: 20220530, end: 20220530
  7. THIOTEPA [Suspect]
     Active Substance: THIOTEPA
     Indication: Central nervous system lymphoma
     Dosage: 46 MG, 1X/DAY
     Route: 041
     Dates: start: 20220428, end: 20220428
  8. THIOTEPA [Suspect]
     Active Substance: THIOTEPA
     Dosage: 46 MG, 1X/DAY
     Route: 041
     Dates: start: 20220602, end: 20220602
  9. AMLODIPINE BESYLATE [Suspect]
     Active Substance: AMLODIPINE BESYLATE
     Indication: Disease complication
     Route: 048
  10. REPAGLINIDE [Suspect]
     Active Substance: REPAGLINIDE
     Indication: Disease complication
     Route: 048
     Dates: start: 20220425, end: 20220503
  11. CYTARABINE [Suspect]
     Active Substance: CYTARABINE
     Indication: Central nervous system lymphoma
     Dosage: 3100 MG, 2X/DAY
     Route: 041
     Dates: start: 20220426, end: 20220427
  12. CYTARABINE [Suspect]
     Active Substance: CYTARABINE
     Dosage: 3100 MG, 2X/DAY
     Route: 041
     Dates: start: 20220531, end: 20220601
  13. DEXAMETHASONE SODIUM PHOSPHATE [Suspect]
     Active Substance: DEXAMETHASONE SODIUM PHOSPHATE
     Indication: Prophylaxis of nausea and vomiting
     Route: 042
     Dates: start: 20220425, end: 20220428
  14. AZILSARTAN KAMEDOXOMIL [Concomitant]
     Active Substance: AZILSARTAN KAMEDOXOMIL
     Route: 048
  15. FEBUXOSTAT [Concomitant]
     Active Substance: FEBUXOSTAT
  16. JARDIANCE [Concomitant]
     Active Substance: EMPAGLIFLOZIN
  17. FAMOTIDINE [Concomitant]
     Active Substance: FAMOTIDINE
     Route: 048
  18. MAGNESIUM OXIDE [Concomitant]
     Active Substance: MAGNESIUM OXIDE
     Route: 048
  19. MIYA-BM [Concomitant]
     Active Substance: CLOSTRIDIUM BUTYRICUM SPORES STRAIN M-55
     Route: 048
  20. LANSOPRAZOLE [Concomitant]
     Active Substance: LANSOPRAZOLE
     Dates: start: 20220516, end: 20220529
  21. FLUCONAZOLE [Concomitant]
     Active Substance: FLUCONAZOLE
     Route: 048
  22. SULFAMETHOXAZOLE\TRIMETHOPRIM [Concomitant]
     Active Substance: SULFAMETHOXAZOLE\TRIMETHOPRIM
     Route: 048
     Dates: start: 20220502, end: 20220629
  23. LINAGLIPTIN [Concomitant]
     Active Substance: LINAGLIPTIN
     Dates: start: 20220425, end: 20220624
  24. SHAKUYAKUKANZOTO [Concomitant]
     Active Substance: HERBALS
     Route: 048
     Dates: start: 20220426, end: 20220503
  25. CEFEPIME HYDROCHLORIDE [Concomitant]
     Active Substance: CEFEPIME HYDROCHLORIDE
     Dates: start: 20220502, end: 20220607
  26. FILGRASTIM [Concomitant]
     Active Substance: FILGRASTIM
     Dates: start: 20220502, end: 20220506
  27. PIPERACILLIN SODIUM\TAZOBACTAM SODIUM [Concomitant]
     Active Substance: PIPERACILLIN SODIUM\TAZOBACTAM SODIUM
     Dates: start: 20220613, end: 20220616
  28. IRRADIATED PLATELET CONCENTRATE-LEUKOCYTES REDUCED [Concomitant]
     Dates: start: 20220506, end: 20220615
  29. HUMAN RED BLOOD CELL [Concomitant]
     Active Substance: HUMAN RED BLOOD CELL
     Dates: start: 20220507, end: 20220507

REACTIONS (6)
  - Febrile neutropenia [Recovering/Resolving]
  - Platelet count decreased [Recovered/Resolved]
  - White blood cell count decreased [Recovered/Resolved]
  - Anaemia [Recovering/Resolving]
  - Febrile neutropenia [Recovered/Resolved]
  - Hiccups [Recovered/Resolved]

NARRATIVE: CASE EVENT DATE: 20220426
